FAERS Safety Report 8605130-6 (Version None)
Quarter: 2012Q3

REPORT INFORMATION
  Report Type: 
  Country: None (occurrence: None)
  Receive Date: 20120820
  Receipt Date: 20120816
  Transmission Date: 20120928
  Serious: Yes (Hospitalization)
  Sender: FDA-Public Use
  Company Number: AT-BRISTOL-MYERS SQUIBB COMPANY-16850604

PATIENT
  Age: 78 Year
  Sex: Female

DRUGS (4)
  1. IPILIMUMAB [Suspect]
     Indication: METASTATIC MALIGNANT MELANOMA
     Dosage: ONGOING
     Dates: start: 20120614
  2. LEVOTHYROXINE SODIUM [Concomitant]
     Dates: start: 20071101
  3. HYPREN PLUS [Concomitant]
     Dates: start: 20120607
  4. AMLODIPINE [Concomitant]
     Dates: start: 20111101

REACTIONS (1)
  - CONSTIPATION [None]
